FAERS Safety Report 6830752-2 (Version None)
Quarter: 2010Q3

REPORT INFORMATION
  Report Type: 
  Country: None (occurrence: None)
  Receive Date: 20100712
  Receipt Date: 20100628
  Transmission Date: 20110219
  Serious: Yes (Hospitalization)
  Sender: FDA-Public Use
  Company Number: PHHY2010US42852

PATIENT
  Age: 55 Year
  Sex: Male

DRUGS (10)
  1. MYFORTIC [Suspect]
     Indication: PROPHYLAXIS AGAINST TRANSPLANT REJECTION
     Dosage: 720 MG, DAILY
     Route: 048
     Dates: start: 20080526
  2. MYFORTIC [Suspect]
     Indication: LIVER TRANSPLANT
  3. PROGRAF [Concomitant]
     Indication: PROPHYLAXIS AGAINST TRANSPLANT REJECTION
     Dosage: 4 MG, DAILY
     Route: 048
     Dates: start: 20080512
  4. PROTONIX [Concomitant]
     Indication: ULCER
     Dosage: 40 MG, DAILY
     Route: 048
     Dates: start: 20080512
  5. ASPIRIN [Concomitant]
     Dosage: 81 MG,  DAILY
     Route: 048
     Dates: start: 20000418
  6. ACTIGALL [Concomitant]
     Indication: CHOLECYSTECTOMY
     Dosage: 600 MG, DAILY
     Route: 048
     Dates: start: 20080527
  7. COZAAR [Concomitant]
     Indication: BLOOD PRESSURE
     Dosage: 25 MG, DAILY
     Route: 048
     Dates: start: 20080703
  8. SEPTRA [Concomitant]
     Indication: CYTOMEGALOVIRUS INFECTION
     Dosage: 3 X 400 MG-80 MG,WEEKLY
     Route: 048
     Dates: start: 20080519
  9. AMBIEN [Concomitant]
     Indication: INSOMNIA
     Dosage: 10 MG, DAILY
     Route: 048
     Dates: start: 20010418
  10. CALCIUM [Concomitant]

REACTIONS (1)
  - FOOD POISONING [None]
